APPROVED DRUG PRODUCT: LOPERAMIDE HYDROCHLORIDE AND SIMETHICONE
Active Ingredient: LOPERAMIDE HYDROCHLORIDE; SIMETHICONE
Strength: 2MG;125MG
Dosage Form/Route: TABLET;ORAL
Application: A077500 | Product #001
Applicant: SUN PHARMACEUTICAL INDUSTRIES LTD
Approved: Sep 6, 2006 | RLD: No | RS: No | Type: DISCN